FAERS Safety Report 9408849 (Version 1)
Quarter: 2013Q3

REPORT INFORMATION
  Report Type: Spontaneous
  Country: US (occurrence: US)
  Receive Date: 20130719
  Receipt Date: 20130719
  Transmission Date: 20140515
  Serious: No
  Sender: FDA-Public Use
  Company Number: US-B.I. PHARMACEUTICALS,INC./RIDGEFIELD-2013-BI-20435BP

PATIENT
  Age: 82 Year
  Sex: Male

DRUGS (2)
  1. SPIRIVA [Suspect]
     Indication: CHRONIC OBSTRUCTIVE PULMONARY DISEASE
     Dosage: 18 MCG
     Route: 055
     Dates: start: 201211
  2. INSULIN 70/30 [Concomitant]
     Indication: DIABETES MELLITUS
     Dosage: FORMULATION: SUBCUTANEOUS
     Route: 058
     Dates: start: 1973

REACTIONS (1)
  - Dry eye [Not Recovered/Not Resolved]
